FAERS Safety Report 8072314-8 (Version None)
Quarter: 2012Q1

REPORT INFORMATION
  Report Type: 
  Country: None (occurrence: None)
  Receive Date: 20120126
  Receipt Date: 20120125
  Transmission Date: 20120608
  Serious: No
  Sender: FDA-Public Use
  Company Number: US-BAYER-2012-008000

PATIENT
  Age: 65 Year
  Sex: Female
  Weight: 82 kg

DRUGS (13)
  1. LYRICA [Concomitant]
     Dosage: 100 MG, UNK
  2. CLONIDINE [Concomitant]
     Dosage: 0.1 MG, UNK
  3. AMANTADINE HCL [Concomitant]
     Dosage: 100 MG, UNK
  4. AMLODIPINE [Concomitant]
     Dosage: 5 MG, UNK
  5. FLUOXETINE [Concomitant]
     Dosage: 20 MG, UNK
  6. DIAZEPAM [Concomitant]
     Dosage: 5 MG, UNK
  7. HYDROCODONE BITARTRATE AND ACETAMINOPHEN [Concomitant]
  8. BETASERON [Suspect]
     Route: 058
  9. GABAPENTIN [Concomitant]
     Dosage: 300 MG, UNK
  10. PANTOPRAZOLE [Concomitant]
     Dosage: 40 MG, UNK
  11. DIVALPROEX SODIUM [Concomitant]
     Dosage: 500 MG, UNK
  12. VIIBRYD [Concomitant]
  13. VITAMIN D [Concomitant]
     Dosage: UNK, UNK, 400 UNIT

REACTIONS (1)
  - INJECTION SITE MASS [None]
